FAERS Safety Report 21215352 (Version 3)
Quarter: 2023Q4

REPORT INFORMATION
  Report Type: Spontaneous
  Country: US (occurrence: US)
  Receive Date: 20220816
  Receipt Date: 20231028
  Transmission Date: 20240110
  Serious: No
  Sender: FDA-Public Use
  Company Number: US-JNJFOC-20220814560

PATIENT
  Age: 41 Year
  Sex: Female
  Weight: 81.72 kg

DRUGS (4)
  1. RISPERDAL CONSTA [Suspect]
     Active Substance: RISPERIDONE
     Indication: Mental disorder
     Dosage: PRESCRIPTION NO.:93252
     Route: 030
  2. RISPERDAL CONSTA [Suspect]
     Active Substance: RISPERIDONE
  3. RISPERDAL CONSTA [Suspect]
     Active Substance: RISPERIDONE
  4. RISPERDAL CONSTA [Suspect]
     Active Substance: RISPERIDONE

REACTIONS (3)
  - Product leakage [Unknown]
  - Inappropriate schedule of product administration [Unknown]
  - Product reconstitution quality issue [Unknown]

NARRATIVE: CASE EVENT DATE: 20220802
